APPROVED DRUG PRODUCT: TIGAN
Active Ingredient: TRIMETHOBENZAMIDE HYDROCHLORIDE
Strength: 300MG **Federal Register determination that product was not discontinued or withdrawn for safety or effectiveness reasons**
Dosage Form/Route: CAPSULE;ORAL
Application: N017531 | Product #006
Applicant: KING PHARMACEUTICALS LLC
Approved: Dec 13, 2001 | RLD: Yes | RS: No | Type: DISCN